FAERS Safety Report 6692491-0 (Version None)
Quarter: 2010Q2

REPORT INFORMATION
  Report Type: 
  Country: None (occurrence: None)
  Receive Date: 20100422
  Receipt Date: 20100414
  Transmission Date: 20101027
  Serious: Yes (Disabling)
  Sender: FDA-Public Use
  Company Number: B0621420A

PATIENT
  Sex: Female

DRUGS (4)
  1. PAXIL [Suspect]
     Indication: DEPRESSION
     Dosage: 20MG PER DAY
     Route: 048
     Dates: end: 20080425
  2. NAUZELIN [Suspect]
     Indication: PROPHYLAXIS
     Dosage: 10MG PER DAY
     Route: 048
     Dates: end: 20080425
  3. AMLODIN [Suspect]
     Indication: HYPERTENSION
     Dosage: 2.5MG PER DAY
     Route: 048
     Dates: end: 20080425
  4. AMOXAN [Suspect]
     Indication: DEPRESSION
     Dosage: 10MG PER DAY
     Route: 048
     Dates: end: 20080425

REACTIONS (5)
  - INTENTION TREMOR [None]
  - MUSCLE RIGIDITY [None]
  - PARKINSON'S DISEASE [None]
  - PARKINSONISM [None]
  - TREMOR [None]
